FAERS Safety Report 8503519-7 (Version None)
Quarter: 2012Q3

REPORT INFORMATION
  Report Type: 
  Country: None (occurrence: None)
  Receive Date: 20120711
  Receipt Date: 20120610
  Transmission Date: 20120928
  Serious: No
  Sender: FDA-Public Use
  Company Number: US-BAYER-2012-058645

PATIENT

DRUGS (2)
  1. IBUPROFEN [Concomitant]
     Dosage: 4 UNK, UNK
  2. NAPROXEN (ALEVE) [Suspect]
     Indication: HEADACHE
     Dosage: 2 DF, UNK
     Route: 048

REACTIONS (1)
  - MIGRAINE [None]
